FAERS Safety Report 17894310 (Version 3)
Quarter: 2020Q4

REPORT INFORMATION
  Report Type: Report from Study
  Country: None (occurrence: US)
  Receive Date: 20200615
  Receipt Date: 20201006
  Transmission Date: 20210113
  Serious: Yes (Other)
  Sender: FDA-Public Use
  Company Number: US-BIOVITRUM-2019US4101

PATIENT
  Sex: Female

DRUGS (4)
  1. METFORMIN [Concomitant]
     Active Substance: METFORMIN HYDROCHLORIDE
  2. KINERET [Suspect]
     Active Substance: ANAKINRA
     Route: 058
     Dates: start: 20190925
  3. PREDNISONE. [Concomitant]
     Active Substance: PREDNISONE
  4. KINERET [Suspect]
     Active Substance: ANAKINRA
     Indication: RHEUMATOID ARTHRITIS
     Route: 058
     Dates: start: 20190925

REACTIONS (8)
  - Feeling abnormal [Unknown]
  - Anaemia [Unknown]
  - Inflammatory marker increased [Unknown]
  - Rheumatoid arthritis [Unknown]
  - Injection site haemorrhage [Unknown]
  - Fatigue [Unknown]
  - Blood glucose fluctuation [Unknown]
  - Injection site pain [Unknown]
